FAERS Safety Report 17654699 (Version 2)
Quarter: 2020Q2

REPORT INFORMATION
  Report Type: Report from Study
  Country: LB (occurrence: LB)
  Receive Date: 20200410
  Receipt Date: 20200413
  Transmission Date: 20200713
  Serious: Yes (Death)
  Sender: FDA-Public Use
  Company Number: LB-SUN PHARMACEUTICAL INDUSTRIES LTD-2020R1-243030

PATIENT
  Age: 69 Year
  Sex: Male

DRUGS (6)
  1. PREDNISONE. [Suspect]
     Active Substance: PREDNISONE
     Indication: BLADDER CANCER
     Dosage: UNK
     Route: 065
  2. ETHAMBUTOL [Suspect]
     Active Substance: ETHAMBUTOL HYDROCHLORIDE
     Indication: BLADDER CANCER
     Dosage: 800 MILLIGRAM, TID
     Route: 065
  3. ISONIAZID. [Suspect]
     Active Substance: ISONIAZID
     Indication: BLADDER CANCER
     Dosage: 300 MILLIGRAM, QD
     Route: 065
  4. BCG [Concomitant]
     Active Substance: BCG VACCINE
     Indication: BLADDER CANCER
     Dosage: UNK
     Route: 043
  5. RIFAMPIN. [Suspect]
     Active Substance: RIFAMPIN
     Indication: BLADDER CANCER
     Dosage: 600 MILLIGRAM, QD
     Route: 065
  6. METHYLPREDNISOLONE. [Suspect]
     Active Substance: METHYLPREDNISOLONE
     Indication: BLADDER CANCER
     Dosage: 40 MILLIGRAM, 1DOSE/24HOUR
     Route: 065

REACTIONS (1)
  - Malignant neoplasm progression [Fatal]
